FAERS Safety Report 8855072 (Version 2)
Quarter: 2013Q3

REPORT INFORMATION
  Report Type: Spontaneous
  Country: US (occurrence: US)
  Receive Date: 20121023
  Receipt Date: 20130904
  Transmission Date: 20140515
  Serious: Yes (Hospitalization, Disabling, Other)
  Sender: FDA-Public Use
  Company Number: US-009507513-1203USA03646

PATIENT
  Sex: Male
  Weight: 90.7 kg

DRUGS (5)
  1. FOSAMAX [Suspect]
     Indication: OSTEOPOROSIS
     Dosage: 70 MG, QW
     Route: 048
  2. FOSAMAX [Suspect]
     Indication: OSTEOPENIA
     Dosage: 10 MG, QD
     Route: 048
     Dates: end: 201011
  3. ALENDRONATE SODIUM [Suspect]
     Dosage: 70 MG, UNK
     Route: 048
  4. VITAMIN D (UNSPECIFIED) [Concomitant]
     Dosage: 50,000
     Dates: start: 1992
  5. OS-CAL (CALCIUM CARBONATE) [Concomitant]
     Dosage: 500 MG, BID
     Dates: start: 1992

REACTIONS (55)
  - Femur fracture [Unknown]
  - Stress fracture [Unknown]
  - Knee operation [Unknown]
  - Epilepsy [Unknown]
  - Bone density decreased [Unknown]
  - Osteoporosis [Unknown]
  - Convulsion [Unknown]
  - Intramedullary rod insertion [Unknown]
  - Cyst removal [Unknown]
  - Adenocarcinoma pancreas [Unknown]
  - Pancreaticoduodenectomy [Unknown]
  - Post procedural haematoma [Recovering/Resolving]
  - Haemorrhagic anaemia [Unknown]
  - Femur fracture [Unknown]
  - Sinus congestion [Not Recovered/Not Resolved]
  - Essential hypertension [Unknown]
  - Venous insufficiency [Not Recovered/Not Resolved]
  - Peripheral embolism [Unknown]
  - Onychomycosis [Unknown]
  - Diverticulitis [Unknown]
  - Weight increased [Unknown]
  - Fatigue [Unknown]
  - Feeling abnormal [Unknown]
  - Polyuria [Unknown]
  - Skin wound [Unknown]
  - Impaired healing [Unknown]
  - Increased tendency to bruise [Unknown]
  - Cardiac murmur [Unknown]
  - Spinal compression fracture [Unknown]
  - Thoracic vertebral fracture [Unknown]
  - Benign prostatic hyperplasia [Unknown]
  - Osteoarthritis [Unknown]
  - Varicose vein [Unknown]
  - Back injury [Unknown]
  - Kyphosis [Unknown]
  - Anaemia [Unknown]
  - Nocturia [Unknown]
  - Atrial fibrillation [Unknown]
  - Deep vein thrombosis [Unknown]
  - Gastrointestinal tube insertion [Unknown]
  - Arthritis [Unknown]
  - Gastroenteritis [Unknown]
  - Gastrointestinal disorder [Unknown]
  - Gastroenteritis [Unknown]
  - Nocturia [Unknown]
  - Pleural effusion [Unknown]
  - Atelectasis [Unknown]
  - Hypotension [Unknown]
  - Streptococcal infection [Unknown]
  - Pneumonia klebsiella [Unknown]
  - Muscle spasms [Unknown]
  - Back pain [Unknown]
  - Oedema peripheral [Unknown]
  - Oedema peripheral [Not Recovered/Not Resolved]
  - Local swelling [Unknown]
